FAERS Safety Report 20139650 (Version 1)
Quarter: 2021Q4

REPORT INFORMATION
  Report Type: Other
  Country: ES (occurrence: None)
  Receive Date: 20211202
  Receipt Date: 20211202
  Transmission Date: 20220303
  Serious: Yes (Other)
  Sender: FDA-Public Use
  Company Number: ES-ROCHE-2967145

PATIENT
  Age: 69 Year
  Sex: Female

DRUGS (5)
  1. ATEZOLIZUMAB [Suspect]
     Active Substance: ATEZOLIZUMAB
     Indication: Uterine cancer
     Route: 065
  2. METFORMIN [Concomitant]
     Active Substance: METFORMIN HYDROCHLORIDE
  3. SIMVASTATIN [Concomitant]
     Active Substance: SIMVASTATIN
  4. BISOPROLOL [Concomitant]
     Active Substance: BISOPROLOL
  5. EDOXABAN [Concomitant]
     Active Substance: EDOXABAN

REACTIONS (1)
  - Sarcoidosis [Unknown]
